FAERS Safety Report 23991210 (Version 4)
Quarter: 2024Q4

REPORT INFORMATION
  Report Type: Spontaneous
  Country: CA (occurrence: CA)
  Receive Date: 20240619
  Receipt Date: 20241120
  Transmission Date: 20250115
  Serious: Yes (Other)
  Sender: PFIZER
  Company Number: CA-PFIZER INC-PV202400079533

PATIENT
  Age: 63 Year
  Sex: Female

DRUGS (2)
  1. IBRANCE [Suspect]
     Active Substance: PALBOCICLIB
     Indication: Breast cancer metastatic
     Dosage: 125 MG, CYCLIC (CURRENT CYCLE) OD (DAILY) FOR 21 DAYS THEN 7 DAYS OFF
     Dates: start: 20240416
  2. IBRANCE [Suspect]
     Active Substance: PALBOCICLIB
     Dosage: 100 MG, CYCLIC DAILY FOR 21 DAYS STOP FOR 7 DAYS THEN REPEAT CYCLE
     Dates: start: 202406

REACTIONS (4)
  - Cytopenia [Unknown]
  - Nausea [Unknown]
  - COVID-19 [Recovering/Resolving]
  - Neoplasm progression [Unknown]

NARRATIVE: CASE EVENT DATE: 20240101
